FAERS Safety Report 12419137 (Version 2)
Quarter: 2016Q2

REPORT INFORMATION
  Report Type: Report from Study
  Country: FR (occurrence: FR)
  Receive Date: 20160531
  Receipt Date: 20160601
  Transmission Date: 20160815
  Serious: Yes (Other)
  Sender: FDA-Public Use
  Company Number: FR-ABBVIE-16K-056-1614843-00

PATIENT
  Sex: Male
  Weight: 75 kg

DRUGS (9)
  1. HUMIRA [Suspect]
     Active Substance: ADALIMUMAB
     Route: 058
     Dates: start: 201204
  2. METHOTREXATE [Suspect]
     Active Substance: METHOTREXATE
     Indication: PRODUCT USED FOR UNKNOWN INDICATION
     Route: 065
     Dates: start: 200304, end: 201405
  3. HUMIRA [Suspect]
     Active Substance: ADALIMUMAB
     Indication: RHEUMATOID ARTHRITIS
     Route: 058
     Dates: start: 200304
  4. TOPALGIC [Concomitant]
     Active Substance: TRAMADOL
     Indication: PRODUCT USED FOR UNKNOWN INDICATION
  5. METHOTREXATE [Suspect]
     Active Substance: METHOTREXATE
     Route: 065
     Dates: start: 201405, end: 201505
  6. NOVATREX NOS [Suspect]
     Active Substance: AZITHROMYCIN OR METHOTREXATE SODIUM
     Indication: PRODUCT USED FOR UNKNOWN INDICATION
     Route: 065
     Dates: start: 2003
  7. NOVATREX NOS [Suspect]
     Active Substance: AZITHROMYCIN OR METHOTREXATE SODIUM
     Route: 065
     Dates: start: 20150824
  8. FOLIC ACID. [Concomitant]
     Active Substance: FOLIC ACID
     Indication: PRODUCT USED FOR UNKNOWN INDICATION
  9. CALCIUM [Concomitant]
     Active Substance: CALCIUM
     Indication: PRODUCT USED FOR UNKNOWN INDICATION

REACTIONS (5)
  - Rheumatoid arthritis [Unknown]
  - Drug ineffective [Unknown]
  - Hepatocellular injury [Not Recovered/Not Resolved]
  - Bursitis [Unknown]
  - Synovitis [Unknown]

NARRATIVE: CASE EVENT DATE: 2014
